FAERS Safety Report 6958215-4 (Version None)
Quarter: 2010Q3

REPORT INFORMATION
  Report Type: 
  Country: None (occurrence: None)
  Receive Date: 20100830
  Receipt Date: 20100830
  Transmission Date: 20110219
  Serious: Yes (Disabling, Other)
  Sender: FDA-Public Use
  Company Number: None

PATIENT
  Age: 58 Year
  Sex: Male
  Weight: 104.3273 kg

DRUGS (1)
  1. CHANTIX [Suspect]
     Indication: SMOKING CESSATION THERAPY
     Dates: start: 20091212, end: 20100212

REACTIONS (8)
  - ANXIETY [None]
  - COGNITIVE DISORDER [None]
  - DEPRESSION [None]
  - ECONOMIC PROBLEM [None]
  - IMPAIRED WORK ABILITY [None]
  - MEMORY IMPAIRMENT [None]
  - SUICIDAL IDEATION [None]
  - THINKING ABNORMAL [None]
